FAERS Safety Report 15591883 (Version 2)
Quarter: 2018Q4

REPORT INFORMATION
  Report Type: Spontaneous
  Country: ZA (occurrence: ZA)
  Receive Date: 20181106
  Receipt Date: 20181227
  Transmission Date: 20190205
  Serious: Yes (Hospitalization)
  Sender: FDA-Public Use
  Company Number: ZA-NOVOPROD-629869

PATIENT
  Age: 87 Year
  Sex: Male

DRUGS (2)
  1. TRESIBA [Suspect]
     Active Substance: INSULIN DEGLUDEC
     Indication: TYPE 2 DIABETES MELLITUS
     Dosage: 10 IU, QD (AT NIGHT)
     Route: 058
     Dates: start: 20180528
  2. GALVUS [Concomitant]
     Active Substance: VILDAGLIPTIN
     Dosage: UNK

REACTIONS (4)
  - Memory impairment [Unknown]
  - Syncope [Not Recovered/Not Resolved]
  - Influenza [Not Recovered/Not Resolved]
  - Dysuria [Not Recovered/Not Resolved]
